FAERS Safety Report 5242249-4 (Version None)
Quarter: 2007Q1

REPORT INFORMATION
  Report Type: 
  Country: None (occurrence: None)
  Receive Date: 20070216
  Receipt Date: 20070216
  Transmission Date: 20070707
  Serious: Yes (Life-Threatening)
  Sender: FDA-Public Use
  Company Number: None

PATIENT
  Age: 58 Year
  Sex: Male
  Weight: 78.9259 kg

DRUGS (1)
  1. ADVAIR DISKUS 500/50 [Suspect]
     Indication: CHRONIC OBSTRUCTIVE PULMONARY DISEASE
     Dosage: 2 TWICE PER DAY PO
     Route: 048
     Dates: start: 20070215, end: 20070222

REACTIONS (3)
  - ANXIETY [None]
  - DIAPHRAGMALGIA [None]
  - INCORRECT DOSE ADMINISTERED [None]
